FAERS Safety Report 4405431-1 (Version None)
Quarter: 2004Q3

REPORT INFORMATION
  Report Type: 
  Country: None (occurrence: None)
  Receive Date: 20040720
  Receipt Date: 20040707
  Transmission Date: 20050211
  Serious: Yes (Life-Threatening)
  Sender: FDA-Public Use
  Company Number: OMPQ-NO-0407S-0817 (0)

PATIENT
  Age: 60 Year
  Sex: Female

DRUGS (4)
  1. OMNIPAQUE 180 [Suspect]
     Indication: BILE DUCT CANCER
     Dosage: 15 ML, SINGLE DOSE, I.A.
     Dates: start: 20040705, end: 20040705
  2. ABSORBABLE GELATIN SPONGE (GELFOAM) [Concomitant]
  3. THROMBIN LOCAL SOLUTION [Concomitant]
  4. AMIKACIN SULFATE [Concomitant]

REACTIONS (11)
  - ANAEMIA [None]
  - BLOOD PRESSURE DECREASED [None]
  - COAGULOPATHY [None]
  - HAEMATURIA [None]
  - HAEMOBILIA [None]
  - IMPLANT SITE HAEMORRHAGE [None]
  - INTRA-ABDOMINAL HAEMORRHAGE [None]
  - JAUNDICE [None]
  - PORTAL VEIN OCCLUSION [None]
  - PROCEDURAL COMPLICATION [None]
  - THROMBOCYTOPENIA [None]
